FAERS Safety Report 7606988-X (Version None)
Quarter: 2011Q3

REPORT INFORMATION
  Report Type: 
  Country: None (occurrence: None)
  Receive Date: 20110713
  Receipt Date: 20110707
  Transmission Date: 20111222
  Serious: Yes (Death)
  Sender: FDA-Public Use
  Company Number: JP-PFIZER INC-2011136353

PATIENT
  Age: 87 Year
  Sex: Male

DRUGS (3)
  1. VFEND [Suspect]
     Dosage: 260MG DAILY
     Route: 041
     Dates: start: 20110622, end: 20110629
  2. MICAFUNGIN SODIUM [Concomitant]
     Indication: ASPERGILLOSIS
     Dosage: 100MG DAILY
     Route: 041
     Dates: end: 20110704
  3. VFEND [Suspect]
     Indication: BRONCHOPULMONARY ASPERGILLOSIS
     Dosage: 300MG DAILY
     Route: 041
     Dates: start: 20110610, end: 20110621

REACTIONS (3)
  - CONDITION AGGRAVATED [None]
  - LIVER FUNCTION TEST ABNORMAL [None]
  - SEPSIS [None]
